FAERS Safety Report 4720843-4 (Version None)
Quarter: 2005Q3

REPORT INFORMATION
  Report Type: 
  Country: None (occurrence: None)
  Receive Date: 20050721
  Receipt Date: 20050706
  Transmission Date: 20060218
  Serious: Yes (Death, Hospitalization)
  Sender: FDA-Public Use
  Company Number: CLOF-10038

PATIENT

DRUGS (2)
  1. CLOFARABINE [Suspect]
  2. CYTARABINE [Suspect]

REACTIONS (1)
  - SEPSIS [None]
